FAERS Safety Report 9507906 (Version 1)
Quarter: 2013Q3

REPORT INFORMATION
  Report Type: Spontaneous
  Country: US (occurrence: None)
  Receive Date: 20130906
  Receipt Date: 20130906
  Transmission Date: 20140515
  Serious: No
  Sender: FDA-Public Use
  Company Number: None

PATIENT
  Sex: Female

DRUGS (1)
  1. KINERET [Suspect]
     Dosage: INJECT 100MG SUBCUTANEOUSLY DAILY ?100 MG/0.6ML SC
     Route: 058

REACTIONS (2)
  - Lymphatic disorder [None]
  - Transferrin saturation increased [None]
